FAERS Safety Report 9969995 (Version 1)
Quarter: 2014Q1

REPORT INFORMATION
  Report Type: Spontaneous
  Country: US (occurrence: None)
  Receive Date: 20140131
  Receipt Date: 20140131
  Transmission Date: 20141002
  Serious: Yes (Other)
  Sender: FDA-Public Use
  Company Number: 089621

PATIENT
  Sex: Female
  Weight: 59 kg

DRUGS (7)
  1. KEPPRA [Suspect]
     Indication: CONVULSION
     Dosage: 500 MG 5X/DAY, TEMPORARILY INTERUPTED??
  2. FOLIC ACID [Concomitant]
  3. SALBUTAMOL [Concomitant]
  4. VENLAFAXINA MEPHA [Concomitant]
  5. BUSPIRONE [Concomitant]
  6. LAMICTAL [Concomitant]
  7. CLONAZEPAM [Concomitant]

REACTIONS (3)
  - Convulsion [None]
  - Inappropriate schedule of drug administration [None]
  - Brain operation [None]
